FAERS Safety Report 23945285 (Version 2)
Quarter: 2024Q3

REPORT INFORMATION
  Report Type: Spontaneous
  Country: US (occurrence: US)
  Receive Date: 20240606
  Receipt Date: 20240705
  Transmission Date: 20241017
  Serious: No
  Sender: SANOFI AVENTIS
  Company Number: US-SA-SAC20240531001005

PATIENT
  Sex: Female

DRUGS (17)
  1. DUPIXENT [Suspect]
     Active Substance: DUPILUMAB
     Indication: Neurodermatitis
     Dosage: 300 MG, QOW
     Route: 058
  2. BUSPIRONE HCL [Concomitant]
     Active Substance: BUSPIRONE HYDROCHLORIDE
  3. BUSPIRONE HCL [Concomitant]
     Active Substance: BUSPIRONE HYDROCHLORIDE
  4. LEXAPRO [Concomitant]
     Active Substance: ESCITALOPRAM OXALATE
  5. LEXAPRO [Concomitant]
     Active Substance: ESCITALOPRAM OXALATE
  6. LISINOPRIL [Concomitant]
     Active Substance: LISINOPRIL
  7. LISINOPRIL [Concomitant]
     Active Substance: LISINOPRIL
  8. MONTELUKAST [Concomitant]
     Active Substance: MONTELUKAST SODIUM
  9. MONTELUKAST [Concomitant]
     Active Substance: MONTELUKAST SODIUM
  10. WELLBUTRIN SR [Concomitant]
     Active Substance: BUPROPION HYDROCHLORIDE
  11. WELLBUTRIN SR [Concomitant]
     Active Substance: BUPROPION HYDROCHLORIDE
  12. ALBUTEROL SULFATE [Concomitant]
     Active Substance: ALBUTEROL SULFATE
  13. ALBUTEROL SULFATE [Concomitant]
     Active Substance: ALBUTEROL SULFATE
  14. AZITHROMYCIN [Concomitant]
     Active Substance: AZITHROMYCIN
  15. AZITHROMYCIN [Concomitant]
     Active Substance: AZITHROMYCIN
  16. PIMECROLIMUS [Concomitant]
     Active Substance: PIMECROLIMUS
  17. PIMECROLIMUS [Concomitant]
     Active Substance: PIMECROLIMUS

REACTIONS (6)
  - Depression [Unknown]
  - Fatigue [Unknown]
  - Anxiety [Unknown]
  - Asthenia [Unknown]
  - Hyperphagia [Unknown]
  - Illness [Unknown]
